FAERS Safety Report 6337843-3 (Version None)
Quarter: 2009Q3

REPORT INFORMATION
  Report Type: 
  Country: None (occurrence: None)
  Receive Date: 20090902
  Receipt Date: 20090827
  Transmission Date: 20100115
  Serious: Yes (Hospitalization)
  Sender: FDA-Public Use
  Company Number: A0805379A

PATIENT
  Age: 43 Year

DRUGS (5)
  1. TOPOTECAN [Suspect]
     Indication: RHABDOMYOSARCOMA
     Dates: start: 20090727, end: 20090731
  2. DASATINIB [Suspect]
     Indication: RHABDOMYOSARCOMA
     Dosage: 70MG TWICE PER DAY
     Route: 048
     Dates: start: 20090514, end: 20090602
  3. LORAZEPAM [Concomitant]
  4. MARINOL [Concomitant]
  5. OXYCODON [Concomitant]

REACTIONS (5)
  - ANAEMIA [None]
  - FATIGUE [None]
  - MALIGNANT NEOPLASM PROGRESSION [None]
  - NEUTROPENIA [None]
  - PYREXIA [None]
